FAERS Safety Report 9903714 (Version 2)
Quarter: 2014Q1

REPORT INFORMATION
  Report Type: Spontaneous
  Country: US (occurrence: US)
  Receive Date: 20140217
  Receipt Date: 20140217
  Transmission Date: 20141002
  Serious: Yes (Other)
  Sender: FDA-Public Use
  Company Number: US-AMGEN-USASP2013091579

PATIENT
  Age: 65 Year
  Sex: Female
  Weight: 54.7 kg

DRUGS (4)
  1. PROCRIT [Suspect]
     Indication: PROPHYLAXIS
     Dosage: 30000 UNIT, UNK
     Route: 058
     Dates: start: 20131226
  2. METHOTREXATE [Concomitant]
     Indication: RHEUMATOID ARTHRITIS
     Dosage: 20 MG, QWK
     Route: 030
  3. FOLIC ACID [Concomitant]
     Dosage: 1 MG, QD
     Route: 048
  4. NORCO [Concomitant]
     Indication: ARTHRALGIA
     Dosage: UNK UNK, QD

REACTIONS (3)
  - Vitreous floaters [Not Recovered/Not Resolved]
  - Visual impairment [Unknown]
  - Pain in jaw [Unknown]
